FAERS Safety Report 8219430-5 (Version None)
Quarter: 2012Q1

REPORT INFORMATION
  Report Type: 
  Country: None (occurrence: None)
  Receive Date: 20120319
  Receipt Date: 20120316
  Transmission Date: 20120608
  Serious: Yes (Hospitalization, Other)
  Sender: FDA-Public Use
  Company Number: US-PFIZER INC-2011146503

PATIENT
  Sex: Male
  Weight: 113 kg

DRUGS (8)
  1. AMIODARONE [Concomitant]
     Indication: CARDIAC DISORDER
     Dosage: 200 MG, DAILY
  2. VISTARIL [Suspect]
     Indication: DEPRESSION
     Dosage: 25 MG, 2X/DAY
  3. LISINOPRIL [Suspect]
     Indication: HYPERTENSION
     Dosage: 20 MG, DAILY
  4. LIPITOR [Suspect]
     Indication: BLOOD CHOLESTEROL INCREASED
     Dosage: 20 MG, DAILY
  5. VISTARIL [Suspect]
     Indication: ANXIETY
  6. ZOLOFT [Suspect]
     Indication: DEPRESSION
     Dosage: 100 MG, DAILY
  7. METOPROLOL [Concomitant]
     Indication: CARDIAC DISORDER
     Dosage: 25 MG, 2X/DAY
  8. IMDUR [Concomitant]
     Indication: CARDIAC DISORDER
     Dosage: 20 MG, DAILY

REACTIONS (5)
  - DEPRESSION [None]
  - ANXIETY [None]
  - CORONARY ARTERY OCCLUSION [None]
  - PRURITUS [None]
  - INTERMITTENT EXPLOSIVE DISORDER [None]
